FAERS Safety Report 20182632 (Version 2)
Quarter: 2021Q4

REPORT INFORMATION
  Report Type: Report from Study
  Country: US (occurrence: US)
  Receive Date: 20211214
  Receipt Date: 20211227
  Transmission Date: 20220304
  Serious: Yes (Death, Hospitalization)
  Sender: FDA-Public Use
  Company Number: US-NOVARTISPH-NVSC2021US285968

PATIENT
  Age: 91 Year
  Sex: Male
  Weight: 71.8 kg

DRUGS (1)
  1. VOTRIENT [Suspect]
     Active Substance: PAZOPANIB HYDROCHLORIDE
     Indication: Sarcoma
     Dosage: 400 MG
     Route: 048
     Dates: start: 20210731, end: 20210823

REACTIONS (9)
  - Respiratory failure [Fatal]
  - COVID-19 [Fatal]
  - Dyspnoea [Fatal]
  - Cough [Fatal]
  - Fatigue [Fatal]
  - Myalgia [Fatal]
  - Metastases to lung [Fatal]
  - Sarcoma [Fatal]
  - Malignant neoplasm progression [Fatal]

NARRATIVE: CASE EVENT DATE: 20211006
